FAERS Safety Report 17801676 (Version 2)
Quarter: 2020Q2

REPORT INFORMATION
  Report Type: Report from Study
  Country: CO (occurrence: CO)
  Receive Date: 20200519
  Receipt Date: 20200522
  Transmission Date: 20200714
  Serious: Yes (Death, Other)
  Sender: FDA-Public Use
  Company Number: CO-ASTRAZENECA-2020SE64308

PATIENT
  Age: 29757 Day
  Sex: Male

DRUGS (1)
  1. BRILINTA [Suspect]
     Active Substance: TICAGRELOR
     Indication: ACUTE CORONARY SYNDROME
     Route: 048
     Dates: start: 20191018

REACTIONS (4)
  - Death [Fatal]
  - Pneumonia [Unknown]
  - Cerebral ischaemia [Unknown]
  - Infarction [Unknown]

NARRATIVE: CASE EVENT DATE: 20200214
